FAERS Safety Report 6886618 (Version 4)
Quarter: 2013Q1

REPORT INFORMATION
  Report Type: Report from Study
  Country: US (occurrence: US)
  Receive Date: 20090120
  Receipt Date: 20130121
  Transmission Date: 20140127
  Serious: Yes (Hospitalization, Congenital Anomaly, Other)
  Sender: FDA-Public Use
  Company Number: US-BIOGENIDEC-2009BI000580

PATIENT
  Age: 0 Day
  Sex: Female
  Weight: 2 kg

DRUGS (2)
  1. TYSABRI [Suspect]
     Indication: MATERNAL EXPOSURE TIMING UNSPECIFIED
     Route: 064
     Dates: start: 20061005, end: 20080226
  2. ZANTAC [Concomitant]
     Indication: GASTROOESOPHAGEAL REFLUX DISEASE

REACTIONS (3)
  - Fallot^s tetralogy [Recovered/Resolved]
  - Asperger^s disorder [Not Recovered/Not Resolved]
  - Gastrooesophageal reflux disease [Recovered/Resolved]
